FAERS Safety Report 20802632 (Version 1)
Quarter: 2022Q2

REPORT INFORMATION
  Report Type: Spontaneous
  Country: US (occurrence: None)
  Receive Date: 20220509
  Receipt Date: 20220509
  Transmission Date: 20220720
  Serious: Yes (Hospitalization)
  Sender: FDA-Public Use
  Company Number: None

PATIENT
  Age: 78 Year
  Sex: Male
  Weight: 64 kg

DRUGS (1)
  1. METOPROLOL SUCCINATE ER [Suspect]
     Active Substance: METOPROLOL SUCCINATE
     Indication: Atrial fibrillation
     Dosage: FREQUENCY : TWICE A DAY;?
     Route: 048
     Dates: start: 20181121, end: 20220409

REACTIONS (2)
  - Bradycardia [None]
  - Atrioventricular block [None]

NARRATIVE: CASE EVENT DATE: 20220409
